FAERS Safety Report 6919552-2 (Version None)
Quarter: 2010Q3

REPORT INFORMATION
  Report Type: 
  Country: None (occurrence: None)
  Receive Date: 20100810
  Receipt Date: 20100810
  Transmission Date: 20110219
  Serious: Yes (Hospitalization, Other)
  Sender: FDA-Public Use
  Company Number: None

PATIENT
  Sex: Male
  Weight: 47.4 kg

DRUGS (1)
  1. CLOFARABINE 1 MG/ML [Suspect]
     Indication: ACUTE MYELOID LEUKAEMIA RECURRENT
     Dosage: 44 MG IV
     Route: 042
     Dates: start: 20100413, end: 20100518

REACTIONS (7)
  - ARTHRALGIA [None]
  - CHILLS [None]
  - FEBRILE NEUTROPENIA [None]
  - HEADACHE [None]
  - INFUSION RELATED REACTION [None]
  - MUSCLE SPASMS [None]
  - PAIN [None]
